FAERS Safety Report 19481865 (Version 1)
Quarter: 2021Q2

REPORT INFORMATION
  Report Type: Spontaneous
  Country: US (occurrence: US)
  Receive Date: 20210630
  Receipt Date: 20210630
  Transmission Date: 20210717
  Serious: No
  Sender: FDA-Public Use
  Company Number: None

PATIENT
  Age: 30 Year
  Sex: Female

DRUGS (4)
  1. VALIUM [Concomitant]
     Active Substance: DIAZEPAM
  2. VITAMIN D [Concomitant]
     Active Substance: VITAMIN D NOS
  3. SINEMET [Concomitant]
     Active Substance: CARBIDOPA\LEVODOPA
  4. SAPROPTERIN DIHY 100MG PAR [Suspect]
     Active Substance: SAPROPTERIN DIHYDROCHLORIDE
     Indication: METABOLIC DISORDER
     Route: 048
     Dates: start: 20210527

REACTIONS (6)
  - Dyskinesia [None]
  - Headache [None]
  - Nausea [None]
  - Impaired work ability [None]
  - Somnolence [None]
  - Product substitution issue [None]

NARRATIVE: CASE EVENT DATE: 202105
